FAERS Safety Report 7784268-X (Version None)
Quarter: 2011Q3

REPORT INFORMATION
  Report Type: 
  Country: None (occurrence: None)
  Receive Date: 20110928
  Receipt Date: 20110915
  Transmission Date: 20111222
  Serious: Yes (Hospitalization)
  Sender: FDA-Public Use
  Company Number: PHEH2011US04372

PATIENT
  Age: 54 Year
  Sex: Female
  Weight: 120 kg

DRUGS (16)
  1. METOPROLOL TARTRATE [Concomitant]
     Dosage: 50 MG, DAILY
     Route: 048
     Dates: start: 19980911
  2. ACYCLOVIR [Concomitant]
     Dosage: 400 MG, QD
     Route: 048
     Dates: start: 19980824, end: 20110102
  3. LIPITOR [Concomitant]
     Dosage: 10 MG, DAILY
     Route: 048
     Dates: start: 19980911
  4. BACTRIM [Concomitant]
     Dosage: 1 DF, TIW
     Route: 048
     Dates: start: 19980911
  5. PREDNISONE [Concomitant]
     Dosage: 20 MG, DAILY
     Route: 048
     Dates: start: 19980911
  6. AZATHIOPRINE [Concomitant]
     Indication: PROPHYLAXIS AGAINST TRANSPLANT REJECTION
     Route: 048
  7. AZITHROMYCIN [Concomitant]
     Dosage: 750 MG, QW
     Route: 048
     Dates: start: 19980911
  8. METHYLPREDNISOLONE [Concomitant]
     Indication: PROPHYLAXIS AGAINST TRANSPLANT REJECTION
     Dosage: UNK UKN, UNK
     Route: 048
  9. ACTONEL [Concomitant]
     Dosage: 35 MG, QW
     Route: 048
     Dates: start: 19990209
  10. FEXOFENADINE [Concomitant]
     Dosage: UNK UKN, UNK
     Route: 048
  11. JANUVIA [Concomitant]
     Dosage: 50 MG, DAILY
     Route: 048
     Dates: start: 20100407
  12. TACROLIMUS [Concomitant]
     Indication: PROPHYLAXIS AGAINST TRANSPLANT REJECTION
     Dosage: 2 MG, DAILY
     Route: 048
     Dates: start: 19991020
  13. DIOVAN HCT [Concomitant]
     Dosage: 12.5 MG/160 MG, QD
     Route: 048
     Dates: start: 20090202
  14. CYCLOSPORINE [Suspect]
     Indication: PROPHYLAXIS AGAINST TRANSPLANT REJECTION
  15. AMARYL [Concomitant]
     Dosage: 4 MG, DAILY
     Route: 048
     Dates: start: 19980911
  16. MYCOPHENOLATE MOFETIL [Concomitant]
     Indication: PROPHYLAXIS AGAINST TRANSPLANT REJECTION
     Dosage: 1000 MG, DAILY
     Route: 048
     Dates: start: 19991020

REACTIONS (3)
  - LUNG TRANSPLANT REJECTION [None]
  - INFECTION [None]
  - DIABETES MELLITUS [None]
